FAERS Safety Report 7219872-0 (Version None)
Quarter: 2011Q1

REPORT INFORMATION
  Report Type: 
  Country: None (occurrence: None)
  Receive Date: 20110111
  Receipt Date: 20110105
  Transmission Date: 20110831
  Serious: Yes (Life-Threatening, Hospitalization)
  Sender: FDA-Public Use
  Company Number: NL-ROCHE-743067

PATIENT
  Weight: 75 kg

DRUGS (12)
  1. CAPECITABINE [Suspect]
     Indication: GASTRIC CANCER
     Dosage: LAST DOSE; 14 DECEMBER 2010,INTERRUPTED
     Route: 065
     Dates: start: 20101101
  2. CISPLATIN [Suspect]
     Route: 065
     Dates: start: 20101124
  3. CAPECITABINE [Suspect]
     Route: 065
     Dates: start: 20101124
  4. PANTOPRAZOLE [Concomitant]
     Dosage: FOR YEARS
     Route: 048
  5. SYMBICORT [Concomitant]
     Route: 055
  6. CISPLATIN [Suspect]
     Indication: GASTRIC CANCER
     Dosage: LAST DOSE; 01 NOV 2010, INTERRUPTED
     Route: 065
     Dates: start: 20101101
  7. EPIRUBICIN [Suspect]
     Indication: GASTRIC CANCER
     Dosage: LAST DOSE: 01 NOV 2010, INTERRUPTED
     Route: 065
     Dates: start: 20101101
  8. TAMSULOSINE [Concomitant]
     Route: 048
     Dates: start: 20070101
  9. EPIRUBICIN [Suspect]
     Route: 065
     Dates: start: 20101124
  10. METOPROLOL TARTRATE [Concomitant]
     Dosage: FOR YEARS
     Route: 048
  11. PANTOPRAZOLE [Concomitant]
     Route: 048
  12. FINASTERIDE [Concomitant]
     Dates: start: 20070101

REACTIONS (2)
  - CEREBROVASCULAR ACCIDENT [None]
  - TRANSIENT ISCHAEMIC ATTACK [None]
